FAERS Safety Report 8505740-0 (Version None)
Quarter: 2012Q3

REPORT INFORMATION
  Report Type: 
  Country: None (occurrence: None)
  Receive Date: 20120712
  Receipt Date: 20120705
  Transmission Date: 20120928
  Serious: Yes (Hospitalization, Other)
  Sender: FDA-Public Use
  Company Number: PHHY2011US57783

PATIENT
  Sex: Female
  Weight: 52.154 kg

DRUGS (9)
  1. GILENYA [Suspect]
     Dosage: 0.5 MG, QD
     Route: 048
     Dates: start: 20111228, end: 20120312
  2. PROMETRIUM [Concomitant]
  3. CRESTOR [Concomitant]
  4. GILENYA [Suspect]
     Dosage: 0.5 MG, QD
     Route: 048
  5. METHYLPREDNISOLONE [Concomitant]
  6. GILENYA [Suspect]
     Indication: RELAPSING-REMITTING MULTIPLE SCLEROSIS
     Dosage: 0.5 MG
     Route: 048
     Dates: start: 20110128
  7. VIVELLE-DOT [Concomitant]
  8. GILENYA [Suspect]
     Dosage: 0.5 MG, QD
     Route: 048
     Dates: start: 20111101
  9. PREDNISONE [Concomitant]

REACTIONS (33)
  - NASAL OEDEMA [None]
  - CHEST DISCOMFORT [None]
  - FOOT DEFORMITY [None]
  - EYE SWELLING [None]
  - DECREASED APPETITE [None]
  - HEPATIC ENZYME INCREASED [None]
  - CONSTIPATION [None]
  - ASTHENIA [None]
  - HEMIPARESIS [None]
  - BREAST PAIN [None]
  - IMPLANT SITE REACTION [None]
  - NAUSEA [None]
  - FATIGUE [None]
  - SENSORY DISTURBANCE [None]
  - HEADACHE [None]
  - HYPOAESTHESIA [None]
  - BACK PAIN [None]
  - ANKLE DEFORMITY [None]
  - TOXICITY TO VARIOUS AGENTS [None]
  - EYELID OEDEMA [None]
  - EYE IRRITATION [None]
  - VISUAL IMPAIRMENT [None]
  - DIZZINESS [None]
  - WHITE BLOOD CELL COUNT DECREASED [None]
  - HEAD DISCOMFORT [None]
  - PERIPHERAL COLDNESS [None]
  - GAIT DISTURBANCE [None]
  - DYSPNOEA [None]
  - EYELID PAIN [None]
  - BURNING SENSATION [None]
  - VENOUS STENOSIS [None]
  - VISION BLURRED [None]
  - EYE PAIN [None]
